FAERS Safety Report 15194071 (Version 1)
Quarter: 2018Q3

REPORT INFORMATION
  Report Type: Spontaneous
  Country: US (occurrence: US)
  Receive Date: 20180626
  Receipt Date: 20180626
  Transmission Date: 20181010
  Serious: Yes (Hospitalization)
  Sender: FDA-Public Use
  Company Number: None

PATIENT
  Age: 77 Year
  Sex: Female
  Weight: 65.7 kg

DRUGS (16)
  1. PALBOCICLIB [Suspect]
     Active Substance: PALBOCICLIB
  2. SENNA (SENOKOT) [Concomitant]
  3. VITAMIN D3?CALCIUM CARBONATE [Concomitant]
  4. PRILOSEC [Concomitant]
     Active Substance: OMEPRAZOLE MAGNESIUM
  5. VITAMIN B6 [Concomitant]
     Active Substance: PYRIDOXINE HYDROCHLORIDE
  6. TEMAZEPAM (RESTORIL) [Concomitant]
  7. VITAMIN D3?CHOLECALCIFEROL [Concomitant]
  8. BACTRIM DS [Concomitant]
     Active Substance: SULFAMETHOXAZOLE\TRIMETHOPRIM
  9. ALLOPURINOL (ZYLOPRIM) [Concomitant]
  10. URSODIOL (ACTIGALL) [Concomitant]
  11. DOCUSATE (COLACE) [Concomitant]
  12. DECADRON [Concomitant]
     Active Substance: DEXAMETHASONE
  13. MIRALAX [Concomitant]
     Active Substance: POLYETHYLENE GLYCOL 3350
  14. ACYCLOVIR (ZOVIRAX) [Concomitant]
  15. FEXOFENADINE (ALLEGRA) [Concomitant]
  16. DIFLUCAN [Concomitant]
     Active Substance: FLUCONAZOLE

REACTIONS (1)
  - Febrile neutropenia [None]

NARRATIVE: CASE EVENT DATE: 20180622
